FAERS Safety Report 6643287-7 (Version None)
Quarter: 2010Q1

REPORT INFORMATION
  Report Type: 
  Country: None (occurrence: None)
  Receive Date: 20100319
  Receipt Date: 20100310
  Transmission Date: 20100710
  Serious: Yes (Hospitalization)
  Sender: FDA-Public Use
  Company Number: GXKR2010GB02918

PATIENT
  Sex: Female
  Weight: 5.2 kg

DRUGS (8)
  1. PROPRANOLOL (NGX) [Suspect]
     Indication: POSTOPERATIVE CARE
     Dosage: 5 MG, UNK
     Route: 048
     Dates: start: 20100301, end: 20100301
  2. ACETYLSALICYLIC ACID SRT [Concomitant]
     Route: 065
  3. CAPTOPRIL [Concomitant]
  4. FUROSEMIDE [Concomitant]
  5. MELATONIN [Concomitant]
  6. RANITIDINE [Concomitant]
  7. SPIRONOLACTONE [Concomitant]
  8. GAVISCON                                /GFR/ [Concomitant]

REACTIONS (2)
  - BRADYCARDIA [None]
  - PERIPHERAL CIRCULATORY FAILURE [None]
